FAERS Safety Report 4322941-6 (Version None)
Quarter: 2004Q1

REPORT INFORMATION
  Report Type: 
  Country: None (occurrence: None)
  Receive Date: 20040322
  Receipt Date: 20040311
  Transmission Date: 20041129
  Serious: Yes (Hospitalization, Other)
  Sender: FDA-Public Use
  Company Number: US-JNJFOC-20040302906

PATIENT
  Age: 63 Year
  Sex: Female

DRUGS (3)
  1. DURAGESIC [Suspect]
     Indication: PAIN
     Dates: start: 20010101, end: 20010101
  2. DURAGESIC [Suspect]
     Indication: PAIN
     Dates: start: 20020101, end: 20020101
  3. DURAGESIC [Suspect]
     Indication: PAIN
     Dates: start: 20031120

REACTIONS (3)
  - ABDOMINAL PAIN [None]
  - DISORIENTATION [None]
  - MOBILITY DECREASED [None]
